FAERS Safety Report 6155618-5 (Version None)
Quarter: 2009Q2

REPORT INFORMATION
  Report Type: 
  Country: None (occurrence: None)
  Receive Date: 20090415
  Receipt Date: 20090407
  Transmission Date: 20091009
  Serious: Yes (Hospitalization, Other)
  Sender: FDA-Public Use
  Company Number: BE-ABBOTT-09P-013-0567011-00

PATIENT
  Sex: Female
  Weight: 51.2 kg

DRUGS (6)
  1. HUMIRA [Suspect]
     Indication: CROHN'S DISEASE
     Route: 058
     Dates: start: 20060224
  2. SALAZOPYRINE [Concomitant]
     Indication: DRUG USE FOR UNKNOWN INDICATION
  3. EMCONCOR [Concomitant]
     Indication: PALPITATIONS
  4. VITAMIN B-12 [Concomitant]
     Indication: DRUG USE FOR UNKNOWN INDICATION
  5. NULYTELY [Concomitant]
     Indication: DRUG USE FOR UNKNOWN INDICATION
  6. CENTRUM [Concomitant]
     Indication: DRUG USE FOR UNKNOWN INDICATION

REACTIONS (5)
  - APHASIA [None]
  - CAROTID ARTERIOSCLEROSIS [None]
  - CEREBRAL INFARCTION [None]
  - HEMIPARESIS [None]
  - MUSCULOSKELETAL PAIN [None]
